FAERS Safety Report 25007614 (Version 1)
Quarter: 2025Q1

REPORT INFORMATION
  Report Type: Spontaneous
  Country: US (occurrence: US)
  Receive Date: 20250225
  Receipt Date: 20250225
  Transmission Date: 20250408
  Serious: Yes (Life-Threatening, Hospitalization, Other)
  Sender: STRIDES
  Company Number: US-STRIDES ARCOLAB LIMITED-2025SP002322

PATIENT
  Age: 38 Year
  Sex: Male

DRUGS (14)
  1. VANCOMYCIN [Suspect]
     Active Substance: VANCOMYCIN
     Indication: Meningitis bacterial
     Route: 065
  2. VANCOMYCIN [Suspect]
     Active Substance: VANCOMYCIN
     Indication: Alpha haemolytic streptococcal infection
  3. HYDROCORTISONE [Suspect]
     Active Substance: HYDROCORTISONE
     Indication: Meningitis bacterial
     Route: 065
  4. HYDROCORTISONE [Suspect]
     Active Substance: HYDROCORTISONE
     Indication: Alpha haemolytic streptococcal infection
  5. PREDNISONE [Suspect]
     Active Substance: PREDNISONE
     Indication: Hypopituitarism
     Route: 065
  6. PREDNISONE [Suspect]
     Active Substance: PREDNISONE
     Route: 065
  7. CEFEPIME [Suspect]
     Active Substance: CEFEPIME HYDROCHLORIDE
     Indication: Meningitis bacterial
     Route: 065
  8. CEFEPIME [Suspect]
     Active Substance: CEFEPIME HYDROCHLORIDE
     Indication: Alpha haemolytic streptococcal infection
  9. LAMOTRIGINE [Concomitant]
     Active Substance: LAMOTRIGINE
     Indication: Juvenile myoclonic epilepsy
     Route: 065
  10. HYDROMORPHONE [Concomitant]
     Active Substance: HYDROMORPHONE
     Indication: Symptomatic treatment
     Route: 065
  11. DIPHENHYDRAMINE [Concomitant]
     Active Substance: DIPHENHYDRAMINE
     Indication: Symptomatic treatment
     Route: 065
  12. DROPERIDOL [Concomitant]
     Active Substance: DROPERIDOL
     Indication: Symptomatic treatment
     Route: 065
  13. ACYCLOVIR [Concomitant]
     Active Substance: ACYCLOVIR
     Indication: Antiviral treatment
     Route: 065
  14. NOREPINEPHRINE [Concomitant]
     Active Substance: NOREPINEPHRINE
     Indication: Hypotension
     Route: 065

REACTIONS (8)
  - Septic shock [Recovered/Resolved]
  - Lactic acidosis [Recovered/Resolved]
  - Condition aggravated [Recovered/Resolved]
  - Hypotension [Recovered/Resolved]
  - Meningitis bacterial [Recovered/Resolved]
  - Alpha haemolytic streptococcal infection [Recovered/Resolved]
  - Drug ineffective [Unknown]
  - Off label use [Unknown]
